FAERS Safety Report 9792144 (Version 1)
Quarter: 2013Q4

REPORT INFORMATION
  Report Type: Spontaneous
  Country: US (occurrence: None)
  Receive Date: 20131231
  Receipt Date: 20131231
  Transmission Date: 20140711
  Serious: Yes (Other)
  Sender: FDA-Public Use
  Company Number: None

PATIENT
  Age: 57 Year
  Sex: Female

DRUGS (1)
  1. ACTHAR [Suspect]
     Indication: RENAL TRANSPLANT
     Route: 058

REACTIONS (2)
  - Drug ineffective [None]
  - Kidney transplant rejection [None]
